FAERS Safety Report 14962519 (Version 1)
Quarter: 2018Q2

REPORT INFORMATION
  Report Type: Spontaneous
  Country: FR (occurrence: FR)
  Receive Date: 20180601
  Receipt Date: 20180601
  Transmission Date: 20180711
  Serious: Yes (Hospitalization)
  Sender: FDA-Public Use
  Company Number: FR-BAUSCH-BL-2018-015378

PATIENT
  Age: 72 Year
  Sex: Male
  Weight: 98 kg

DRUGS (14)
  1. CEFPODOXIME [Concomitant]
     Active Substance: CEFPODOXIME
     Indication: BRONCHITIS
     Dosage: 200 MILLIGRAM
     Route: 048
     Dates: start: 20160223, end: 20160302
  2. BACTRIM [Concomitant]
     Active Substance: SULFAMETHOXAZOLE\TRIMETHOPRIM
     Indication: ANTIBIOTIC PROPHYLAXIS
     Dosage: 2400 MILLIGRAM, 1 WEEK
     Route: 048
     Dates: start: 20160222
  3. HELICIDINE [Concomitant]
     Active Substance: ESCARGOT
     Indication: BRONCHITIS
     Dosage: (2), 1 DAY
     Route: 048
     Dates: start: 20160223, end: 20160302
  4. BISOPROLOL [Concomitant]
     Active Substance: BISOPROLOL
     Indication: CORONARY ARTERY INSUFFICIENCY
     Dosage: 5 MILLIGRAM
     Route: 065
  5. PHENOXYMETHYLPENICILLIN [Concomitant]
     Active Substance: PENICILLIN V
     Indication: ANTIBIOTIC PROPHYLAXIS
     Dosage: 2000000 IU (INTERNATIONAL UNIT)
     Route: 048
     Dates: start: 20160222
  6. KARDEGIC [Concomitant]
     Active Substance: ASPIRIN DL-LYSINE
     Indication: THROMBOSIS PROPHYLAXIS
     Dosage: 75 MILLIGRAM
     Route: 048
     Dates: start: 2009
  7. PNEUMOREL [Concomitant]
     Active Substance: FENSPIRIDE HYDROCHLORIDE
     Indication: BRONCHITIS
     Dosage: 240 MILLIGRAM
     Route: 048
     Dates: start: 20160223, end: 20160302
  8. ROCEPHINE [Concomitant]
     Active Substance: CEFTRIAXONE SODIUM
     Indication: BRONCHITIS
     Route: 030
     Dates: start: 20160304, end: 20160309
  9. REVLIMID [Suspect]
     Active Substance: LENALIDOMIDE
     Indication: PLASMA CELL MYELOMA
     Dosage: 525 MILLIGRAM, 28 DAYS
     Route: 048
     Dates: start: 20160222, end: 20160321
  10. ZELITREX [Concomitant]
     Active Substance: VALACYCLOVIR HYDROCHLORIDE
     Indication: VIRAL INFECTION
     Dosage: 500 MILLIGRAM
     Route: 048
     Dates: start: 20160209, end: 20160222
  11. ZELITREX [Concomitant]
     Active Substance: VALACYCLOVIR HYDROCHLORIDE
     Indication: ANTIVIRAL PROPHYLAXIS
  12. LEDERFOLINE [Concomitant]
     Active Substance: LEUCOVORIN CALCIUM
     Indication: PROPHYLAXIS
     Dosage: 10.7143 MILLIGRAM, 1 WEEK
     Route: 048
     Dates: start: 20160222
  13. DEXAMETHASONE. [Suspect]
     Active Substance: DEXAMETHASONE
     Indication: PLASMA CELL MYELOMA
     Dosage: 40 MILLIGRAM, 1 WEEK
     Route: 048
     Dates: start: 20160222, end: 20160321
  14. INEXIUM [Concomitant]
     Active Substance: ESOMEPRAZOLE
     Indication: GASTROOESOPHAGEAL REFLUX DISEASE
     Dosage: 20 MILLIGRAM
     Route: 048
     Dates: start: 20160204

REACTIONS (3)
  - Agitation [Recovered/Resolved]
  - Pulmonary embolism [Recovered/Resolved]
  - Irritability [Recovered/Resolved]

NARRATIVE: CASE EVENT DATE: 20160229
